FAERS Safety Report 9009778 (Version 1)
Quarter: 2013Q1

REPORT INFORMATION
  Report Type: Report from Study
  Country: DE (occurrence: DE)
  Receive Date: 20130110
  Receipt Date: 20130110
  Transmission Date: 20140127
  Serious: Yes (Hospitalization)
  Sender: FDA-Public Use
  Company Number: DE-PFIZER INC-2013002354

PATIENT
  Age: 64 Year
  Sex: Female
  Weight: 61 kg

DRUGS (2)
  1. UNACID [Suspect]
     Dosage: 3 G, 3X/DAY
     Dates: start: 20111204, end: 20111209
  2. AVASTIN [Suspect]
     Indication: BREAST CANCER METASTATIC
     Dosage: 10 MG/KG
     Route: 042
     Dates: start: 20111012, end: 20111023

REACTIONS (1)
  - Osteonecrosis of jaw [Unknown]
